FAERS Safety Report 9196907 (Version 2)
Quarter: 2013Q4

REPORT INFORMATION
  Report Type: Spontaneous
  Country: US (occurrence: US)
  Receive Date: 20130328
  Receipt Date: 20131126
  Transmission Date: 20140711
  Serious: Yes (Other)
  Sender: FDA-Public Use
  Company Number: US-BAYER-2013-038688

PATIENT
  Age: 14 Year
  Sex: Female

DRUGS (7)
  1. YAZ [Suspect]
  2. YASMIN [Suspect]
  3. OCELLA [Suspect]
  4. TOPAMAX [Concomitant]
     Dosage: 50 MG, UNK
     Route: 048
  5. NAPROXEN [Concomitant]
     Dosage: 500 MG, UNK
     Route: 048
  6. AMOXICILLIN [Concomitant]
     Dosage: 500 MG, UNK
     Route: 048
  7. ONDANSETRON [Concomitant]
     Dosage: 4 MG, UNK
     Route: 048

REACTIONS (5)
  - Gallbladder injury [None]
  - Injury [None]
  - Pain [None]
  - Pain [None]
  - Biliary dyskinesia [None]
